FAERS Safety Report 9351588 (Version 2)
Quarter: 2013Q2

REPORT INFORMATION
  Report Type: Spontaneous
  Country: DE (occurrence: DE)
  Receive Date: 20130617
  Receipt Date: 20130628
  Transmission Date: 20140414
  Serious: Yes (Hospitalization)
  Sender: FDA-Public Use
  Company Number: PHHY2013DE060799

PATIENT
  Age: 31 Year
  Sex: Female

DRUGS (1)
  1. OCTREOTIDE [Suspect]
     Indication: NEUROENDOCRINE TUMOUR
     Dosage: UNK UKN, UNK

REACTIONS (3)
  - Acute respiratory distress syndrome [Unknown]
  - Maternal exposure during pregnancy [Unknown]
  - Normal newborn [Unknown]
